FAERS Safety Report 16395804 (Version 1)
Quarter: 2019Q2

REPORT INFORMATION
  Report Type: Spontaneous
  Country: JP (occurrence: JP)
  Receive Date: 20190605
  Receipt Date: 20190605
  Transmission Date: 20190711
  Serious: Yes (Hospitalization)
  Sender: FDA-Public Use
  Company Number: JP-MYLANLABS-2019M1031716

PATIENT
  Sex: Male

DRUGS (10)
  1. NIFEDIPINE. [Suspect]
     Active Substance: NIFEDIPINE
     Dosage: UNK
     Route: 065
     Dates: start: 20190426
  2. CANDESARTAN (CANDESARTAN) [Suspect]
     Active Substance: CANDESARTAN
     Indication: HYPERTENSION
     Dosage: 8 MILLIGRAM
     Route: 048
     Dates: start: 20180723, end: 201904
  3. DILTIAZEM. [Suspect]
     Active Substance: DILTIAZEM
     Dosage: UNK
     Route: 065
     Dates: start: 20190426
  4. CANDESARTAN (CANDESARTAN) [Suspect]
     Active Substance: CANDESARTAN
     Dosage: UNK
     Route: 065
     Dates: start: 20190426
  5. LENVATINIB [Suspect]
     Active Substance: LENVATINIB
     Indication: PRODUCT USED FOR UNKNOWN INDICATION
     Dosage: 8 MILLIGRAM
     Route: 065
     Dates: end: 20190220
  6. DILTIAZEM. [Suspect]
     Active Substance: DILTIAZEM
     Indication: PRODUCT USED FOR UNKNOWN INDICATION
     Dosage: UNK
     Route: 065
     Dates: end: 201904
  7. NIFEDIPINE. [Suspect]
     Active Substance: NIFEDIPINE
     Indication: PRODUCT USED FOR UNKNOWN INDICATION
     Dosage: UNK
     Route: 065
     Dates: end: 201904
  8. LENVATINIB [Suspect]
     Active Substance: LENVATINIB
     Dosage: 4 MILLIGRAM
     Route: 065
     Dates: start: 20190221, end: 20190308
  9. LENVATINIB [Suspect]
     Active Substance: LENVATINIB
     Dosage: 8 MILLIGRAM
     Route: 065
     Dates: start: 20190309, end: 201904
  10. LENVATINIB [Suspect]
     Active Substance: LENVATINIB
     Dosage: 4 MILLIGRAM
     Route: 065
     Dates: start: 20190424

REACTIONS (7)
  - Dehydration [Recovered/Resolved]
  - Malaise [Recovered/Resolved]
  - Hepatic function abnormal [Recovered/Resolved]
  - Prothrombin level decreased [Unknown]
  - Protein urine present [Unknown]
  - Stomatitis [Recovered/Resolved]
  - Decreased appetite [Recovered/Resolved]

NARRATIVE: CASE EVENT DATE: 20190221
